FAERS Safety Report 8795692 (Version 2)
Quarter: 2012Q4

REPORT INFORMATION
  Report Type: 
  Country: HR (occurrence: HR)
  Receive Date: 20120920
  Receipt Date: 20121214
  Transmission Date: 20130627
  Serious: Yes (Other)
  Sender: FDA-Public Use
  Company Number: HR-MILLENNIUM PHARMACEUTICALS, INC.-2012-06388

PATIENT

DRUGS (3)
  1. VELCADE [Suspect]
     Indication: MULTIPLE MYELOMA
     Dosage: 1.3 mg/m2, UNK
     Route: 042
     Dates: start: 20120410, end: 201207
  2. VELCADE [Suspect]
     Dosage: 1 mg/m2, UNK
     Route: 058
     Dates: start: 20120726
  3. DEXAMETHASONE [Concomitant]
     Indication: MULTIPLE MYELOMA

REACTIONS (3)
  - Neuritis [Recovering/Resolving]
  - Endolymphatic hydrops [Recovering/Resolving]
  - Off label use [Unknown]
